FAERS Safety Report 6127783-7 (Version None)
Quarter: 2009Q1

REPORT INFORMATION
  Report Type: 
  Country: None (occurrence: None)
  Receive Date: 20090320
  Receipt Date: 20090320
  Transmission Date: 20090719
  Serious: Yes (Other)
  Sender: FDA-Public Use
  Company Number: None

PATIENT
  Age: 43 Year
  Sex: Female
  Weight: 110.2241 kg

DRUGS (2)
  1. GABAPENTIN [Suspect]
     Dosage: 100 MG TWICE AM AND NOON ONCE PM QHS PO
     Route: 048
     Dates: start: 20041118
  2. GABAPENTIN [Suspect]
     Dosage: 100 MG TWICE AM AND NOON ONCE PM QHS PO
     Route: 048
     Dates: start: 20041119

REACTIONS (7)
  - ANXIETY [None]
  - CONDITION AGGRAVATED [None]
  - DEPRESSION [None]
  - HEADACHE [None]
  - HYPERACUSIS [None]
  - PHOTOPHOBIA [None]
  - PRODUCT QUALITY ISSUE [None]
